FAERS Safety Report 16765419 (Version 5)
Quarter: 2020Q3

REPORT INFORMATION
  Report Type: Report from Study
  Country: JP (occurrence: JP)
  Receive Date: 20190903
  Receipt Date: 20200709
  Transmission Date: 20201102
  Serious: Yes (Hospitalization)
  Sender: FDA-Public Use
  Company Number: JP-TEVA-2019-JP-1102861

PATIENT
  Age: 36 Year
  Sex: Female
  Weight: 53 kg

DRUGS (2)
  1. GLATIRAMER ACETATE 20MG/ML [Suspect]
     Active Substance: GLATIRAMER ACETATE
     Indication: RELAPSING-REMITTING MULTIPLE SCLEROSIS
     Route: 065
     Dates: start: 20181119, end: 20181220
  2. GLATIRAMER ACETATE 20MG/ML [Suspect]
     Active Substance: GLATIRAMER ACETATE
     Dosage: EVERY?OTHER?DAY INJECTION TO REDUCE THE DOSE
     Route: 065
     Dates: start: 20181221

REACTIONS (5)
  - Product prescribing error [Unknown]
  - Migraine [Recovering/Resolving]
  - Injection site pruritus [Recovering/Resolving]
  - Nausea [Recovering/Resolving]
  - Injection site induration [Recovering/Resolving]

NARRATIVE: CASE EVENT DATE: 20181120
